FAERS Safety Report 7988823 (Version 2)
Quarter: 2012Q4

REPORT INFORMATION
  Report Type: 
  Country: CA (occurrence: CA)
  Receive Date: 20110613
  Receipt Date: 20121111
  Transmission Date: 20130627
  Serious: Yes (Hospitalization)
  Sender: FDA-Public Use
  Company Number: PHMT2007CA02170

PATIENT
  Sex: Male

DRUGS (2)
  1. SANDOSTATIN LAR [Suspect]
     Indication: COLON CANCER
     Dosage: 30 mg, every 4 weeks
     Route: 030
     Dates: start: 20070706
  2. ANTINEOPLASTIC AGENTS [Concomitant]

REACTIONS (7)
  - Asthenia [Unknown]
  - Decreased appetite [Recovering/Resolving]
  - Blood pressure increased [Unknown]
  - Pain in extremity [Unknown]
  - Lacrimation increased [Unknown]
  - Diarrhoea [Recovering/Resolving]
  - Fatigue [Unknown]
